FAERS Safety Report 24989190 (Version 1)
Quarter: 2025Q1

REPORT INFORMATION
  Report Type: Spontaneous
  Country: DE (occurrence: DE)
  Receive Date: 20250220
  Receipt Date: 20250220
  Transmission Date: 20250409
  Serious: Yes (Other)
  Sender: ROCHE
  Company Number: DE-ROCHE-10000204525

PATIENT
  Weight: 85 kg

DRUGS (7)
  1. ATEZOLIZUMAB [Suspect]
     Active Substance: ATEZOLIZUMAB
     Indication: Product used for unknown indication
     Route: 065
     Dates: start: 20201201, end: 20201203
  2. ATEZOLIZUMAB [Suspect]
     Active Substance: ATEZOLIZUMAB
     Route: 065
     Dates: start: 20210223
  3. ATEZOLIZUMAB [Suspect]
     Active Substance: ATEZOLIZUMAB
     Route: 065
  4. CARBOPLATIN [Suspect]
     Active Substance: CARBOPLATIN
     Indication: Product used for unknown indication
     Route: 065
     Dates: start: 20201201, end: 20201203
  5. ETOPOSIDE [Suspect]
     Active Substance: ETOPOSIDE
     Indication: Product used for unknown indication
     Route: 065
     Dates: start: 20201201, end: 20201203
  6. DENOSUMAB [Concomitant]
     Active Substance: DENOSUMAB
     Dates: start: 20201204
  7. PIPERACILLIN AND TAZOBACTAM [Concomitant]
     Active Substance: PIPERACILLIN SODIUM\TAZOBACTAM SODIUM
     Route: 040

REACTIONS (9)
  - Metastases to bone [Unknown]
  - Bone lesion [Unknown]
  - Neoplasm [Unknown]
  - Pruritus [Unknown]
  - Dermatitis [Unknown]
  - Eosinophilia [Unknown]
  - Hypothyroidism [Unknown]
  - Ill-defined disorder [Unknown]
  - Cough [Unknown]
